FAERS Safety Report 22541004 (Version 1)
Quarter: 2023Q2

REPORT INFORMATION
  Report Type: Spontaneous
  Country: US (occurrence: US)
  Receive Date: 20230609
  Receipt Date: 20230609
  Transmission Date: 20230721
  Serious: Yes (Hospitalization, Other)
  Sender: FDA-Public Use
  Company Number: US-MEITHEAL-2023MPLIT00071

PATIENT
  Age: 15 Year
  Sex: Female

DRUGS (9)
  1. CARBOPLATIN [Suspect]
     Active Substance: CARBOPLATIN
     Indication: Renal cell carcinoma
     Route: 065
  2. GEMCITABINE [Suspect]
     Active Substance: GEMCITABINE
     Indication: Renal cell carcinoma
     Dosage: ON DAYS 1, 8 AND 15
     Route: 065
  3. GEMCITABINE [Suspect]
     Active Substance: GEMCITABINE
     Dosage: 75% REDUCTION IN DOSE
     Route: 065
  4. CISPLATIN [Suspect]
     Active Substance: CISPLATIN
     Indication: Renal cell carcinoma
     Route: 065
  5. PACLITAXEL [Suspect]
     Active Substance: PACLITAXEL
     Indication: Renal cell carcinoma
     Dosage: ON DAYS 1, 8 AND 15
     Route: 065
  6. VANCOMYCIN [Concomitant]
     Active Substance: VANCOMYCIN
     Route: 042
  7. VANCOMYCIN [Concomitant]
     Active Substance: VANCOMYCIN
  8. CASPOFUNGIN [Concomitant]
     Active Substance: CASPOFUNGIN
     Route: 042
  9. CASPOFUNGIN [Concomitant]
     Active Substance: CASPOFUNGIN

REACTIONS (9)
  - Clostridium difficile infection [Unknown]
  - Gastroenteritis Escherichia coli [Unknown]
  - Hypokalaemia [Unknown]
  - Dehydration [Unknown]
  - Hyponatraemia [Unknown]
  - Hypomagnesaemia [Unknown]
  - Thrombocytopenia [Unknown]
  - Escherichia urinary tract infection [Unknown]
  - Colitis [Unknown]
